FAERS Safety Report 4637389-4 (Version None)
Quarter: 2005Q2

REPORT INFORMATION
  Report Type: 
  Country: None (occurrence: None)
  Receive Date: 20050325
  Receipt Date: 20041207
  Transmission Date: 20051028
  Serious: No
  Sender: FDA-Public Use
  Company Number: USA041285381

PATIENT
  Age: 71 Year
  Sex: Female
  Weight: 36 kg

DRUGS (1)
  1. FORTEO [Suspect]
     Indication: OSTEOPOROSIS
     Dates: start: 20041123

REACTIONS (17)
  - ALOPECIA [None]
  - ASTHENIA [None]
  - DIZZINESS [None]
  - FEELING ABNORMAL [None]
  - FEELING COLD [None]
  - FEELING HOT [None]
  - HEADACHE [None]
  - HOT FLUSH [None]
  - INFLUENZA [None]
  - MUSCLE SPASMS [None]
  - NAUSEA [None]
  - PYREXIA [None]
  - SCRATCH [None]
  - SINUS CONGESTION [None]
  - SINUS DISORDER [None]
  - SKIN CHAPPED [None]
  - SPUTUM DISCOLOURED [None]
